FAERS Safety Report 9142639 (Version 2)
Quarter: 2013Q1

REPORT INFORMATION
  Report Type: Spontaneous
  Country: CN (occurrence: CN)
  Receive Date: 20130306
  Receipt Date: 20130313
  Transmission Date: 20140127
  Serious: Yes (Other)
  Sender: FDA-Public Use
  Company Number: PHHY2013CN021185

PATIENT
  Age: 73 Year
  Sex: Female

DRUGS (3)
  1. ZOLEDRONATE [Suspect]
     Indication: OSTEOPOROSIS
     Dosage: UNK UKN, UNK
     Route: 042
  2. CALCIUM CARBONATE [Concomitant]
     Dosage: 1.5 MG, UNK
     Route: 048
  3. CALCIDOL//COLECALCIFEROL [Concomitant]
     Dosage: 0.25 UG, UNK
     Route: 048

REACTIONS (2)
  - Hepatotoxicity [Unknown]
  - Influenza [Unknown]
